FAERS Safety Report 16066692 (Version 1)
Quarter: 2019Q2

REPORT INFORMATION
  Report Type: Spontaneous
  Country: US (occurrence: US)
  Receive Date: 20190313
  Receipt Date: 20190313
  Transmission Date: 20190711
  Serious: Yes (Life-Threatening, Hospitalization)
  Sender: FDA-Public Use
  Company Number: None

PATIENT
  Age: 18 Year
  Sex: Male
  Weight: 65.25 kg

DRUGS (3)
  1. LAMOTRIGINE. [Suspect]
     Active Substance: LAMOTRIGINE
     Indication: SEIZURE
     Dosage: ?          QUANTITY:1 TABLET(S);?
     Route: 048
     Dates: start: 20181115, end: 20181123
  2. KEPPRA [Concomitant]
     Active Substance: LEVETIRACETAM
  3. MULTIVITAMIN [Concomitant]
     Active Substance: VITAMINS

REACTIONS (7)
  - Mouth swelling [None]
  - Staphylococcal infection [None]
  - Stevens-Johnson syndrome [None]
  - Acinetobacter bacteraemia [None]
  - Eye pruritus [None]
  - Sepsis [None]
  - Urinary tract infection staphylococcal [None]

NARRATIVE: CASE EVENT DATE: 20181123
